FAERS Safety Report 17855287 (Version 1)
Quarter: 2020Q2

REPORT INFORMATION
  Report Type: Spontaneous
  Country: US (occurrence: US)
  Receive Date: 20200602
  Receipt Date: 20200602
  Transmission Date: 20200714
  Serious: Yes (Hospitalization)
  Sender: FDA-Public Use
  Company Number: None

PATIENT
  Age: 61 Year
  Sex: Male
  Weight: 98.1 kg

DRUGS (4)
  1. CYCLOPHOSPHAMIDE. [Suspect]
     Active Substance: CYCLOPHOSPHAMIDE
  2. TOCILIZUMAB. [Suspect]
     Active Substance: TOCILIZUMAB
  3. YESCARTA [Suspect]
     Active Substance: AXICABTAGENE CILOLEUCEL
  4. FLUDARABINE [Suspect]
     Active Substance: FLUDARABINE PHOSPHATE

REACTIONS (12)
  - Serum ferritin increased [None]
  - Confusional state [None]
  - Headache [None]
  - C-reactive protein increased [None]
  - Tumour lysis syndrome [None]
  - Fatigue [None]
  - Neurotoxicity [None]
  - Somnolence [None]
  - Hypotension [None]
  - Pyrexia [None]
  - Cardiorenal syndrome [None]
  - Malaise [None]

NARRATIVE: CASE EVENT DATE: 20200502
